FAERS Safety Report 7786459-0 (Version None)
Quarter: 2011Q3

REPORT INFORMATION
  Report Type: 
  Country: None (occurrence: None)
  Receive Date: 20110927
  Receipt Date: 20110913
  Transmission Date: 20111222
  Serious: Yes (Other)
  Sender: FDA-Public Use
  Company Number: 2011SP043074

PATIENT
  Sex: Male

DRUGS (1)
  1. POLYETHYLENE GLYCOL [Suspect]
     Indication: CONSTIPATION
     Dosage: PO
     Route: 048
     Dates: start: 20110826

REACTIONS (6)
  - DYSPNOEA [None]
  - ABDOMINAL PAIN UPPER [None]
  - DYSPEPSIA [None]
  - FEELING ABNORMAL [None]
  - LOCAL SWELLING [None]
  - ABDOMINAL DISTENSION [None]
